FAERS Safety Report 5514362-5 (Version None)
Quarter: 2007Q4

REPORT INFORMATION
  Report Type: 
  Country: None (occurrence: None)
  Receive Date: 20071113
  Receipt Date: 20070424
  Transmission Date: 20080405
  Serious: Yes (Other)
  Sender: FDA-Public Use
  Company Number: A0648555A

PATIENT

DRUGS (1)
  1. COREG [Suspect]
     Route: 065

REACTIONS (1)
  - ATRIOVENTRICULAR BLOCK [None]
